FAERS Safety Report 10489761 (Version 3)
Quarter: 2014Q4

REPORT INFORMATION
  Report Type: Spontaneous
  Country: DE (occurrence: DE)
  Receive Date: 20141002
  Receipt Date: 20141125
  Transmission Date: 20150528
  Serious: No
  Sender: FDA-Public Use
  Company Number: DE-PFIZER INC-2014267511

PATIENT
  Age: 82 Year
  Sex: Female

DRUGS (2)
  1. HERZASS [Concomitant]
  2. XALATAN [Suspect]
     Active Substance: LATANOPROST
     Indication: GLAUCOMA
     Dosage: 1 DROP EACH EYE, 1X/DAY
     Route: 047
     Dates: start: 200806, end: 201408

REACTIONS (3)
  - Product quality issue [Recovered/Resolved]
  - Eye irritation [Recovered/Resolved]
  - Visual acuity reduced [Recovered/Resolved]

NARRATIVE: CASE EVENT DATE: 201408
